FAERS Safety Report 10242175 (Version 2)
Quarter: 2015Q1

REPORT INFORMATION
  Report Type: Spontaneous
  Country: US (occurrence: None)
  Receive Date: 20140613
  Receipt Date: 20150122
  Transmission Date: 20150720
  Serious: Yes (Hospitalization)
  Sender: FDA-Public Use
  Company Number: UNT-2014-001686

PATIENT
  Age: 4 Year
  Sex: Male
  Weight: 19 kg

DRUGS (7)
  1. REMODULIN [Suspect]
     Active Substance: TREPROSTINIL
     Indication: COR PULMONALE CHRONIC
     Dosage: 0.062 UG/KG, CONTINUING, IV DRIP
     Route: 041
     Dates: start: 20110331
  2. LASIX [Concomitant]
     Active Substance: FUROSEMIDE
  3. SINGULAIR (MONTELUKAST SODIUM) [Concomitant]
  4. FLOVENT [Concomitant]
     Active Substance: FLUTICASONE PROPIONATE
  5. ADVAIR DISKUS [Concomitant]
     Active Substance: FLUTICASONE PROPIONATE\SALMETEROL XINAFOATE
  6. PREDNISONE (PREDNISONE) [Concomitant]
     Active Substance: PREDNISONE
  7. REVATIO [Concomitant]
     Active Substance: SILDENAFIL CITRATE

REACTIONS (3)
  - Respiratory failure [None]
  - Pneumonia [None]
  - Metapneumovirus infection [None]
